FAERS Safety Report 9321451 (Version 4)
Quarter: 2013Q3

REPORT INFORMATION
  Report Type: Report from Study
  Country: JP (occurrence: JP)
  Receive Date: 20130531
  Receipt Date: 20130828
  Transmission Date: 20140515
  Serious: Yes (Hospitalization)
  Sender: FDA-Public Use
  Company Number: JP-VERTEX PHARMACEUTICALS INC-2013-006398

PATIENT
  Age: 67 Year
  Sex: Male

DRUGS (17)
  1. MP-424 [Suspect]
     Indication: HEPATITIS C
     Dosage: UNK
     Route: 048
     Dates: start: 20130319, end: 20130522
  2. REBETOL [Suspect]
     Indication: CHRONIC HEPATITIS C
     Dosage: 600 MG, QD
     Route: 048
     Dates: start: 20130319, end: 20130404
  3. REBETOL [Suspect]
     Dosage: 400 MG, QD
     Route: 048
     Dates: start: 20130405, end: 20130414
  4. REBETOL [Suspect]
     Dosage: 200 MG, QD
     Route: 048
     Dates: start: 20130415, end: 20130522
  5. FERON [Suspect]
     Indication: CHRONIC HEPATITIS C
     Dosage: 600000 IU, 3X/WEEK
     Route: 042
     Dates: start: 20130319, end: 20130520
  6. ANTIHISTAMINES [Concomitant]
     Dosage: UNK
     Dates: start: 20130325
  7. STEROIDS OINTMENT [Concomitant]
     Dosage: UNK
     Route: 061
     Dates: start: 20130325
  8. ALLOPURINOL [Concomitant]
     Dosage: 200 MG, QD
     Route: 048
     Dates: start: 20130405
  9. ALLOPURINOL [Concomitant]
     Dosage: 100 MG, QD
     Dates: end: 20130522
  10. TULOBUTEROL [Concomitant]
     Dosage: 2 MG, QD
     Route: 062
     Dates: start: 20130519, end: 20130519
  11. HARNAL D [Concomitant]
     Dosage: 0.2 MG, QD
     Route: 048
  12. NORVASC [Concomitant]
     Dosage: 5 MG, QD
     Route: 048
  13. LANIRAPID [Concomitant]
     Dosage: 0.1 MG, QD
     Route: 048
  14. DOMPERIDONE [Concomitant]
     Dosage: 30 MG, QD
     Route: 048
     Dates: start: 20130412, end: 20130522
  15. NEXIUM [Concomitant]
     Dosage: 20 MG, QD
     Route: 048
     Dates: start: 20130322, end: 20130522
  16. LOXOPROFEN [Concomitant]
     Dosage: 60 MG, WHEN FEVER IS PRESENT
     Route: 048
     Dates: end: 20130520
  17. TEARBALANCE [Concomitant]
     Dosage: PROPER DOSE
     Route: 031

REACTIONS (1)
  - Lung disorder [Recovered/Resolved]
